FAERS Safety Report 14588749 (Version 1)
Quarter: 2018Q1

REPORT INFORMATION
  Report Type: Spontaneous
  Country: US (occurrence: US)
  Receive Date: 20180301
  Receipt Date: 20180301
  Transmission Date: 20180509
  Serious: Yes (Hospitalization, Other)
  Sender: FDA-Public Use
  Company Number: US-ELI_LILLY_AND_COMPANY-US201802009532

PATIENT
  Sex: Female

DRUGS (3)
  1. LANTUS [Concomitant]
     Active Substance: INSULIN GLARGINE
     Indication: DIABETES MELLITUS
     Dosage: 10 U, UNK
  2. HUMALOG [Suspect]
     Active Substance: INSULIN LISPRO
     Indication: DIABETES MELLITUS
     Dosage: UNK UNK, UNKNOWN
     Route: 065
  3. HUMALOG [Suspect]
     Active Substance: INSULIN LISPRO
     Dosage: UNK UNK, 5-6 UNITS BEFORE MEALS
     Route: 058

REACTIONS (7)
  - Fall [Unknown]
  - Hip fracture [Unknown]
  - Eye haemorrhage [Unknown]
  - Vomiting [Unknown]
  - Cataract [Unknown]
  - Blindness [Unknown]
  - Eye colour change [Unknown]

NARRATIVE: CASE EVENT DATE: 2015
